FAERS Safety Report 8809344 (Version 3)
Quarter: 2014Q1

REPORT INFORMATION
  Report Type: Spontaneous
  Country: PT (occurrence: PT)
  Receive Date: 20120926
  Receipt Date: 20140114
  Transmission Date: 20141002
  Serious: Yes (Other)
  Sender: FDA-Public Use
  Company Number: PT-VERTEX PHARMACEUTICAL INC.-2012-021795

PATIENT
  Sex: Male

DRUGS (4)
  1. INCIVO [Suspect]
     Indication: HEPATITIS C
     Dosage: 1125 MG, UNK
  2. EFAVIRENZ [Suspect]
     Indication: HIV INFECTION
  3. RIBAVIRIN [Concomitant]
     Indication: HEPATITIS C
  4. PEG INTERFERON [Concomitant]
     Indication: HEPATITIS C

REACTIONS (2)
  - Rash [Recovered/Resolved]
  - Off label use [Unknown]
